FAERS Safety Report 5164194-5 (Version None)
Quarter: 2006Q4

REPORT INFORMATION
  Report Type: 
  Country: None (occurrence: None)
  Receive Date: 20060918
  Receipt Date: 20050822
  Transmission Date: 20070319
  Serious: Yes (Hospitalization)
  Sender: FDA-Public Use
  Company Number: US-JNJFOC-20050805417

PATIENT
  Age: 22 Year
  Sex: Female
  Weight: 83.9154 kg

DRUGS (4)
  1. TOPAMAX [Suspect]
     Indication: MIGRAINE PROPHYLAXIS
     Dosage: 200 MG, 3 IN 1 DAY; ORAL
     Route: 048
  2. INDERAL (CAPSULES) PROPRANOLOL HYDROCHLORIDE [Concomitant]
  3. SYMBALTA (TABLETS) ALL OTHER THERAPEUTIC PRODUCTS [Concomitant]
  4. PREDNISONE (PREDNISONE) TABLETS [Concomitant]

REACTIONS (6)
  - CONFUSIONAL STATE [None]
  - DIZZINESS [None]
  - MIGRAINE [None]
  - PALLOR [None]
  - PARAESTHESIA [None]
  - WEIGHT DECREASED [None]
